FAERS Safety Report 6417628-X (Version None)
Quarter: 2009Q4

REPORT INFORMATION
  Report Type: 
  Country: None (occurrence: None)
  Receive Date: 20091026
  Receipt Date: 20091013
  Transmission Date: 20100525
  Serious: Yes (Disabling)
  Sender: FDA-Public Use
  Company Number: ADR36952009

PATIENT
  Age: 68 Year
  Sex: Male

DRUGS (4)
  1. SIMVASTATIN [Suspect]
     Indication: CORONARY ARTERY BYPASS
     Dosage: 40 MG
     Route: 048
     Dates: start: 20070701, end: 20070827
  2. SIMVASTATIN [Suspect]
     Indication: PROPHYLAXIS
     Dosage: 40 MG
     Route: 048
     Dates: start: 20070701, end: 20070827
  3. ASPIRIN [Concomitant]
  4. RAMIPRIL [Concomitant]

REACTIONS (3)
  - AFFECTIVE DISORDER [None]
  - FEELING ABNORMAL [None]
  - TEARFULNESS [None]
